FAERS Safety Report 12380284 (Version 1)
Quarter: 2016Q2

REPORT INFORMATION
  Report Type: Spontaneous
  Country: US (occurrence: US)
  Receive Date: 20160518
  Receipt Date: 20160518
  Transmission Date: 20160815
  Serious: Yes (Hospitalization)
  Sender: FDA-Public Use
  Company Number: US-STRIDES ARCOLAB LIMITED-2015SP002384

PATIENT

DRUGS (5)
  1. VASOPRESSIN. [Concomitant]
     Active Substance: VASOPRESSIN
     Indication: SEPTIC SHOCK
     Dosage: UNK
     Route: 042
  2. VANCOMYCIN [Suspect]
     Active Substance: VANCOMYCIN
     Indication: OSTEOMYELITIS
     Dosage: UNK
     Route: 051
  3. SODIUM BICARBONATE. [Concomitant]
     Active Substance: SODIUM BICARBONATE
     Indication: METABOLIC ACIDOSIS
     Dosage: UNK
  4. EPINEPHRINE. [Concomitant]
     Active Substance: EPINEPHRINE
     Indication: SEPTIC SHOCK
     Dosage: UNK
  5. AZTREONAM. [Concomitant]
     Active Substance: AZTREONAM
     Indication: UROSEPSIS
     Dosage: UNK
     Route: 042

REACTIONS (2)
  - Acute kidney injury [Recovered/Resolved]
  - Toxicity to various agents [Recovered/Resolved]
